FAERS Safety Report 4324634-8 (Version None)
Quarter: 2004Q1

REPORT INFORMATION
  Report Type: 
  Country: None (occurrence: None)
  Receive Date: 20040322
  Receipt Date: 20040308
  Transmission Date: 20041129
  Serious: Yes (Death)
  Sender: FDA-Public Use
  Company Number: JP-JNJFOC-20031100030

PATIENT
  Age: 49 Year
  Sex: Male

DRUGS (12)
  1. LEUSTATIN [Suspect]
     Indication: BONE MARROW TRANSPLANT
     Dosage: 7 M G, IN 1 DAY, INTRAVENOUS DRIP
     Route: 041
     Dates: start: 20030811, end: 20030816
  2. BUSULFAN [Suspect]
     Indication: BONE MARROW TRANSPLANT
     Dosage: 260 MG, IN 1 DAY, ORAL
     Route: 048
     Dates: start: 20030813, end: 20030814
  3. CYCLOSPORINE [Suspect]
     Indication: PROPHYLAXIS
     Dosage: 300 MG, IN 1 DAY, ORAL
     Route: 048
     Dates: start: 20030818, end: 20030828
  4. CIPROFLOXACIN HCL [Concomitant]
  5. FLUCONAZOLE [Concomitant]
  6. ACYCLOVIR [Concomitant]
  7. BACTRIM [Concomitant]
  8. VALPROATE SODIUM [Concomitant]
  9. METOCLOPRAMIDE [Concomitant]
  10. SUCRALFATE [Concomitant]
  11. ACETAMINOPHEN [Concomitant]
  12. CEFIPIME DIHYDROCHLORIDE (CEFAPIRIN) [Concomitant]

REACTIONS (13)
  - ABDOMINAL PAIN UPPER [None]
  - ANGINA UNSTABLE [None]
  - CACHEXIA [None]
  - COLD SWEAT [None]
  - CRYPTOGENIC ORGANIZING PNEUMONIA [None]
  - CYTOMEGALOVIRUS ENTERITIS [None]
  - ELECTROCARDIOGRAM ST-T SEGMENT ELEVATION [None]
  - GRAFT VERSUS HOST DISEASE [None]
  - INTERSTITIAL LUNG DISEASE [None]
  - MALIGNANT NEOPLASM PROGRESSION [None]
  - NEPHROPATHY [None]
  - PNEUMONIA CYTOMEGALOVIRAL [None]
  - STEM CELL TRANSPLANT [None]
